APPROVED DRUG PRODUCT: HEXALEN
Active Ingredient: ALTRETAMINE
Strength: 50MG
Dosage Form/Route: CAPSULE;ORAL
Application: N019926 | Product #001
Applicant: EISAI INC
Approved: Dec 26, 1990 | RLD: Yes | RS: No | Type: DISCN